FAERS Safety Report 7756874-X (Version None)
Quarter: 2011Q3

REPORT INFORMATION
  Report Type: 
  Country: None (occurrence: None)
  Receive Date: 20110916
  Receipt Date: 20110913
  Transmission Date: 20111222
  Serious: Yes (Hospitalization)
  Sender: FDA-Public Use
  Company Number: US-GLAXOSMITHKLINE-A0773169A

PATIENT
  Age: 58 Year
  Sex: Male
  Weight: 104.1 kg

DRUGS (11)
  1. AVANDIA [Suspect]
     Indication: DIABETES MELLITUS
     Dosage: 4MG PER DAY
     Route: 048
     Dates: start: 20060417, end: 20070801
  2. STARLIX [Concomitant]
  3. GLUCOTROL [Concomitant]
  4. ALTACE [Concomitant]
  5. ZOLOFT [Concomitant]
  6. AMARYL [Concomitant]
  7. IBUPROFEN [Concomitant]
  8. AVANDARYL [Suspect]
     Indication: DIABETES MELLITUS
     Route: 048
     Dates: start: 20060306, end: 20060417
  9. AMARYL [Concomitant]
  10. GLUCOTROL [Concomitant]
  11. STARLIX [Concomitant]

REACTIONS (3)
  - ACUTE CORONARY SYNDROME [None]
  - ANGINA UNSTABLE [None]
  - ARTERIOSCLEROSIS CORONARY ARTERY [None]
